FAERS Safety Report 8291124 (Version 3)
Quarter: 2012Q4

REPORT INFORMATION
  Report Type: 
  Country: US (occurrence: US)
  Receive Date: 20111214
  Receipt Date: 20121207
  Transmission Date: 20130627
  Serious: Yes (Life-Threatening, Hospitalization, Other)
  Sender: FDA-Public Use
  Company Number: US-ROCHE-1018108

PATIENT
  Age: 59 None
  Sex: Female

DRUGS (20)
  1. XOLAIR [Suspect]
     Indication: PRODUCT USED FOR UNKNOWN INDICATION
     Route: 065
  2. BROVANA [Concomitant]
     Route: 065
  3. PULMICORT [Concomitant]
     Route: 065
  4. DEXILANT [Concomitant]
     Route: 065
  5. SPIRIVA [Concomitant]
     Route: 065
  6. CRESTOR [Concomitant]
     Route: 065
  7. ALTACE [Concomitant]
     Route: 065
  8. ASACOL [Concomitant]
     Route: 065
  9. HYDROCORTISONE [Concomitant]
     Route: 065
  10. VITAMIN D [Concomitant]
     Route: 065
  11. VITAMIN B12 [Concomitant]
     Route: 065
  12. CALCIUM [Concomitant]
     Route: 065
  13. BENTYL [Concomitant]
     Route: 065
  14. CHLORDIAZEPOXIDE/CLIDINIUM BR [Concomitant]
     Route: 065
  15. DEXLANSOPRAZOLE [Concomitant]
     Route: 065
  16. ZEGERID [Concomitant]
     Route: 065
  17. CEFUROXIME AXETIL [Concomitant]
     Route: 065
  18. PREDNISONE [Concomitant]
     Route: 065
  19. SOLU-CORTEF [Concomitant]
     Route: 065
  20. MAXAIR [Concomitant]
     Route: 065

REACTIONS (20)
  - Skin burning sensation [Unknown]
  - Dyspnoea [Unknown]
  - Dyspnoea [Unknown]
  - Escherichia urinary tract infection [Unknown]
  - Rash [Unknown]
  - Swelling face [Unknown]
  - Pruritus [Unknown]
  - Pain [Unknown]
  - Diarrhoea [Unknown]
  - Erythema [Unknown]
  - Chills [Unknown]
  - Pyrexia [Unknown]
  - Cough [Unknown]
  - Sneezing [Unknown]
  - Rhinorrhoea [Unknown]
  - Oropharyngeal pain [Unknown]
  - Drug dose omission [Unknown]
  - Crohn^s disease [Unknown]
  - Addison^s disease [Unknown]
  - Influenza [Unknown]
